FAERS Safety Report 4396027-9 (Version None)
Quarter: 2004Q3

REPORT INFORMATION
  Report Type: 
  Country: None (occurrence: None)
  Receive Date: 20040708
  Receipt Date: 20040626
  Transmission Date: 20050211
  Serious: Yes (Death, Hospitalization, Other)
  Sender: FDA-Public Use
  Company Number: 2004028875

PATIENT
  Age: 63 Year
  Sex: Male

DRUGS (10)
  1. ZOLOFT [Suspect]
     Indication: ILL-DEFINED DISORDER
     Dosage: 100 MG (100 MG, 1 IN 1 D), ORAL
     Route: 048
  2. NITROGLYCERIN [Concomitant]
  3. LANSOPRAZOLE [Concomitant]
  4. FUROSEMIDE [Concomitant]
  5. ATORVASTATIN CALCIUM [Concomitant]
  6. DIGOXIN [Concomitant]
  7. AMIODARONE HCL [Concomitant]
  8. GLIMEPIRIDE [Concomitant]
  9. FOSINOPRIL SODIUM [Concomitant]
  10. CARVEDILOL [Concomitant]

REACTIONS (16)
  - ACCIDENT [None]
  - ANTIDEPRESSANT DRUG LEVEL ABOVE THERAPEUTIC [None]
  - ARRHYTHMIA [None]
  - ARTERIOSCLEROSIS [None]
  - COLD SWEAT [None]
  - CYANOSIS [None]
  - DIZZINESS [None]
  - DRUG TOXICITY [None]
  - FALL [None]
  - FATIGUE [None]
  - INFLUENZA LIKE ILLNESS [None]
  - LIVIDITY [None]
  - MEDICATION ERROR [None]
  - PAIN [None]
  - PUPIL FIXED [None]
  - RALES [None]
